FAERS Safety Report 10473021 (Version 1)
Quarter: 2014Q3

REPORT INFORMATION
  Report Type: Spontaneous
  Country: US (occurrence: None)
  Receive Date: 20140923
  Receipt Date: 20140923
  Transmission Date: 20150326
  Serious: No
  Sender: FDA-Public Use
  Company Number: None

PATIENT
  Age: 85 Year
  Sex: Male

DRUGS (19)
  1. ASPIRIN. [Concomitant]
     Active Substance: ASPIRIN
  2. BEANO [Concomitant]
     Active Substance: ASPERGILLUS NIGER .ALPHA.-GALACTOSIDASE
  3. CENTRUM [Concomitant]
     Active Substance: VITAMINS
  4. BACLOFEN. [Concomitant]
     Active Substance: BACLOFEN
  5. POLY-IRON [Concomitant]
  6. GABAPENTIN. [Concomitant]
     Active Substance: GABAPENTIN
  7. CALCIUM CARBONATE WITH D3 [Concomitant]
  8. IPRATROPIUM [Concomitant]
     Active Substance: IPRATROPIUM
  9. COQ10 [Concomitant]
     Active Substance: UBIDECARENONE
  10. ALENDRONATE [Concomitant]
     Active Substance: ALENDRONATE SODIUM
  11. NAMENDA [Concomitant]
     Active Substance: MEMANTINE HYDROCHLORIDE
  12. IMBRUVICA [Suspect]
     Active Substance: IBRUTINIB
     Indication: WALDENSTROM^S MACROGLOBULINAEMIA
     Route: 048
     Dates: start: 20140427
  13. FINASTRIDE [Concomitant]
  14. FLUCINIDE [Concomitant]
  15. ROPINIROLE. [Concomitant]
     Active Substance: ROPINIROLE
  16. IMODIUM [Concomitant]
     Active Substance: LOPERAMIDE HYDROCHLORIDE
  17. VITAMIN D [Concomitant]
     Active Substance: CHOLECALCIFEROL
  18. DONEAPEZIL [Concomitant]
  19. LTANAPROST [Concomitant]

REACTIONS (4)
  - Haematochezia [None]
  - Confusional state [None]
  - Gastrointestinal haemorrhage [None]
  - Gait disturbance [None]

NARRATIVE: CASE EVENT DATE: 20140911
